FAERS Safety Report 12611470 (Version 2)
Quarter: 2016Q3

REPORT INFORMATION
  Report Type: Spontaneous
  Country: US (occurrence: US)
  Receive Date: 20160801
  Receipt Date: 20160817
  Transmission Date: 20161109
  Serious: Yes (Other)
  Sender: FDA-Public Use
  Company Number: US-CELGENEUS-USA-2016075417

PATIENT
  Sex: Male
  Weight: 99.88 kg

DRUGS (1)
  1. REVLIMID [Suspect]
     Active Substance: LENALIDOMIDE
     Indication: PLASMA CELL MYELOMA
     Dosage: 25 MILLIGRAM
     Route: 048
     Dates: start: 20151030, end: 20160707

REACTIONS (3)
  - Light chain analysis increased [Unknown]
  - Spinal compression fracture [Unknown]
  - Drug ineffective [Unknown]
